FAERS Safety Report 6421414-4 (Version None)
Quarter: 2009Q4

REPORT INFORMATION
  Report Type: 
  Country: None (occurrence: None)
  Receive Date: 20091030
  Receipt Date: 20091024
  Transmission Date: 20100525
  Serious: Yes (Hospitalization, Other)
  Sender: FDA-Public Use
  Company Number: GB-BRISTOL-MYERS SQUIBB COMPANY-14823009

PATIENT
  Age: 24 Year
  Sex: Female

DRUGS (1)
  1. ORENCIA [Suspect]
     Indication: RHEUMATOID ARTHRITIS
     Dates: start: 20071101

REACTIONS (4)
  - DERMATITIS PSORIASIFORM [None]
  - DRUG INEFFECTIVE [None]
  - MIGRAINE [None]
  - RHEUMATOID ARTHRITIS [None]
